FAERS Safety Report 6983821-0 (Version None)
Quarter: 2010Q3

REPORT INFORMATION
  Report Type: 
  Country: None (occurrence: None)
  Receive Date: 20100914
  Receipt Date: 20090206
  Transmission Date: 20110219
  Serious: No
  Sender: FDA-Public Use
  Company Number: US-WYE-H07527309

PATIENT
  Age: 14 Year
  Sex: Female
  Weight: 54.48 kg

DRUGS (1)
  1. ADVIL LIQUI-GELS [Suspect]
     Indication: HEADACHE
     Dosage: 2 TABLETS AS NEEDED
     Route: 048
     Dates: start: 20070101

REACTIONS (3)
  - ABDOMINAL DISCOMFORT [None]
  - PRODUCT QUALITY ISSUE [None]
  - VOMITING [None]
